FAERS Safety Report 7207836-2 (Version None)
Quarter: 2010Q4

REPORT INFORMATION
  Report Type: 
  Country: None (occurrence: None)
  Receive Date: 20101221
  Receipt Date: 20101206
  Transmission Date: 20110411
  Serious: Yes (Other)
  Sender: FDA-Public Use
  Company Number: JP-2010-2802

PATIENT
  Age: 44 Year
  Sex: Female

DRUGS (4)
  1. NAVELBINE [Suspect]
     Indication: BREAST CANCER RECURRENT
     Dates: start: 20100301
  2. LOXONIN. MFR: NOT SPECIFIED [Concomitant]
  3. MUCOSTA [Concomitant]
  4. DUROTEP. MFR: NOT SPECIFIED [Concomitant]

REACTIONS (1)
  - DEAFNESS [None]
